FAERS Safety Report 4464028-8 (Version None)
Quarter: 2004Q4

REPORT INFORMATION
  Report Type: 
  Country: None (occurrence: None)
  Receive Date: 20041001
  Receipt Date: 20040819
  Transmission Date: 20050328
  Serious: Yes (Hospitalization)
  Sender: FDA-Public Use
  Company Number: JP-ABBOTT-04P-087-0271280-00

PATIENT
  Sex: Male

DRUGS (12)
  1. KALETRA [Suspect]
     Indication: HIV INFECTION
     Route: 048
     Dates: start: 20021001, end: 20030724
  2. KALETRA [Suspect]
     Dates: start: 20040323
  3. STAVUDINE [Suspect]
     Indication: HIV INFECTION
     Route: 048
     Dates: start: 20021001, end: 20030724
  4. STAVUDINE [Suspect]
     Dates: start: 20040323
  5. LAMIVUDINE [Suspect]
     Indication: HIV INFECTION
     Route: 048
     Dates: start: 20021001, end: 20030724
  6. LAMIVUDINE [Suspect]
     Dates: start: 20040323
  7. GANCICLOVIR [Concomitant]
     Indication: PNEUMONIA CYTOMEGALOVIRAL
     Route: 048
     Dates: start: 20020814, end: 20020903
  8. BACTRIM [Concomitant]
     Indication: PNEUMOCYSTIS CARINII PNEUMONIA
     Route: 048
     Dates: start: 20020827, end: 20020917
  9. BACTRIM [Concomitant]
     Route: 048
     Dates: start: 20021001, end: 20030924
  10. PENTAMIDINE ISETHIONATE [Concomitant]
     Indication: PNEUMOCYSTIS CARINII PNEUMONIA
     Route: 048
     Dates: start: 20020918, end: 20021001
  11. METOCLOPRAMIDE [Concomitant]
     Indication: GASTRITIS
     Route: 048
     Dates: start: 20021001, end: 20030924
  12. FLUCONAZOLE [Concomitant]
     Indication: SYSTEMIC MYCOSIS
     Route: 048
     Dates: start: 20021001, end: 20030724

REACTIONS (7)
  - BLOOD LACTIC ACID INCREASED [None]
  - CONDITION AGGRAVATED [None]
  - GUILLAIN-BARRE SYNDROME [None]
  - HYPOAESTHESIA [None]
  - MUSCULAR WEAKNESS [None]
  - QUADRIPLEGIA [None]
  - SENSORY DISTURBANCE [None]
